FAERS Safety Report 16887480 (Version 2)
Quarter: 2019Q4

REPORT INFORMATION
  Report Type: Spontaneous
  Country: US (occurrence: US)
  Receive Date: 20191004
  Receipt Date: 20191011
  Transmission Date: 20200122
  Serious: Yes (Other)
  Sender: FDA-Public Use
  Company Number: US-AUROBINDO-AUR-APL-2019-063882

PATIENT
  Age: 73 Year
  Sex: Female

DRUGS (1)
  1. CEFUROXIME AXETIL TABLETS USP 250 MG [Suspect]
     Active Substance: CEFUROXIME AXETIL
     Indication: URINARY TRACT INFECTION
     Dosage: UNK (TABLET WITH MARKINGS OF A33)
     Route: 065

REACTIONS (1)
  - Renal failure [Unknown]
